FAERS Safety Report 11878784 (Version 7)
Quarter: 2016Q2

REPORT INFORMATION
  Report Type: Spontaneous
  Country: US (occurrence: US)
  Receive Date: 20151230
  Receipt Date: 20160504
  Transmission Date: 20160815
  Serious: Yes (Hospitalization, Other)
  Sender: FDA-Public Use
  Company Number: US-VERTEX PHARMACEUTICALS-2015-006007

PATIENT
  Age: 43 Year
  Sex: Male

DRUGS (15)
  1. IRON [Concomitant]
     Active Substance: IRON
  2. CREON [Concomitant]
     Active Substance: PANCRELIPASE AMYLASE\PANCRELIPASE LIPASE\PANCRELIPASE PROTEASE
  3. AZITHROMYCIN ANHYDROUS. [Concomitant]
     Active Substance: AZITHROMYCIN ANHYDROUS
  4. HUMALOG [Concomitant]
     Active Substance: INSULIN LISPRO
  5. ENZYMES [Concomitant]
  6. ADVAIR HFA [Concomitant]
     Active Substance: FLUTICASONE PROPIONATE\SALMETEROL XINAFOATE
  7. OXYGEN. [Concomitant]
     Active Substance: OXYGEN
  8. CAYSTON [Concomitant]
     Active Substance: AZTREONAM
  9. VITAMIN E [Concomitant]
     Active Substance: .ALPHA.-TOCOPHEROL
  10. LANTUS [Concomitant]
     Active Substance: INSULIN GLARGINE
  11. CALCITROL [Concomitant]
     Active Substance: CALCITRIOL
  12. ORKAMBI [Suspect]
     Active Substance: IVACAFTOR\LUMACAFTOR
     Indication: CYSTIC FIBROSIS
     Dosage: 400/250 MG, BID
     Route: 048
     Dates: start: 20151202, end: 201603
  13. HYPERTONIC SALINE SOLUTION [Concomitant]
     Active Substance: SODIUM CHLORIDE
  14. PULMOZYME [Concomitant]
     Active Substance: DORNASE ALFA
  15. ALBUTEROL. [Concomitant]
     Active Substance: ALBUTEROL

REACTIONS (9)
  - Increased viscosity of bronchial secretion [Unknown]
  - Hypotension [Recovering/Resolving]
  - Productive cough [Unknown]
  - Diarrhoea [Unknown]
  - Lung infection [Unknown]
  - Liver transplant [Unknown]
  - Abdominal discomfort [Unknown]
  - Fatigue [Unknown]
  - Pulmonary function test decreased [Recovering/Resolving]

NARRATIVE: CASE EVENT DATE: 201512
